FAERS Safety Report 7633224-0 (Version None)
Quarter: 2011Q3

REPORT INFORMATION
  Report Type: 
  Country: None (occurrence: None)
  Receive Date: 20110725
  Receipt Date: 20110713
  Transmission Date: 20111222
  Serious: Yes (Hospitalization)
  Sender: FDA-Public Use
  Company Number: FR-SANOFI-AVENTIS-2011SA044558

PATIENT
  Age: 47 Year
  Sex: Female

DRUGS (4)
  1. LEVOTHYROXINE SODIUM [Concomitant]
  2. TERBINAFINE HCL [Suspect]
     Indication: ONYCHOMYCOSIS
     Dosage: DOSE:1 UNIT(S)
     Route: 048
     Dates: start: 20110525, end: 20110618
  3. PLAQUENIL [Suspect]
     Indication: CUTANEOUS LUPUS ERYTHEMATOSUS
     Route: 048
     Dates: start: 20030401, end: 20110601
  4. PREDNISONE [Concomitant]
     Dates: end: 20110601

REACTIONS (2)
  - SYSTEMIC LUPUS ERYTHEMATOSUS [None]
  - TOXIC SKIN ERUPTION [None]
